FAERS Safety Report 16671524 (Version 2)
Quarter: 2019Q3

REPORT INFORMATION
  Report Type: Spontaneous
  Country: US (occurrence: US)
  Receive Date: 20190806
  Receipt Date: 20190826
  Transmission Date: 20191004
  Serious: No
  Sender: FDA-Public Use
  Company Number: US-BIOGEN-2019BI00771653

PATIENT
  Sex: Female

DRUGS (2)
  1. TECFIDERA [Suspect]
     Active Substance: DIMETHYL FUMARATE
     Route: 048
  2. TECFIDERA [Suspect]
     Active Substance: DIMETHYL FUMARATE
     Indication: MULTIPLE SCLEROSIS
     Dosage: TAKE ONE 120 MG?CAPSULE TWICE A DAY?FOR 7 DAYS,
     Route: 048
     Dates: start: 20190801

REACTIONS (4)
  - Vitamin B12 decreased [Unknown]
  - Paraesthesia [Not Recovered/Not Resolved]
  - Multiple allergies [Unknown]
  - Flushing [Not Recovered/Not Resolved]
